FAERS Safety Report 26092181 (Version 1)
Quarter: 2025Q4

REPORT INFORMATION
  Report Type: Spontaneous
  Country: TR (occurrence: TR)
  Receive Date: 20251126
  Receipt Date: 20251126
  Transmission Date: 20260119
  Serious: Yes (Death, Other)
  Sender: ASTELLAS
  Company Number: TR-ASTELLAS-2025-AER-065552

PATIENT
  Age: 18 Year
  Sex: Female

DRUGS (2)
  1. XOSPATA [Suspect]
     Active Substance: GILTERITINIB
     Indication: Acute myeloid leukaemia recurrent
     Route: 065
     Dates: start: 2024
  2. XOSPATA [Suspect]
     Active Substance: GILTERITINIB
     Indication: FLT3 gene mutation

REACTIONS (3)
  - Death [Fatal]
  - Sepsis [Unknown]
  - Neutropenia [Unknown]

NARRATIVE: CASE EVENT DATE: 20240701
